FAERS Safety Report 19450942 (Version 7)
Quarter: 2022Q2

REPORT INFORMATION
  Report Type: Report from Study
  Country: JP (occurrence: JP)
  Receive Date: 20210623
  Receipt Date: 20220413
  Transmission Date: 20220721
  Serious: Yes (Hospitalization)
  Sender: FDA-Public Use
  Company Number: JP-ABBVIE-19S-087-2814112-00

PATIENT
  Age: 75 Year
  Sex: Female

DRUGS (11)
  1. CARBIDOPA\LEVODOPA [Suspect]
     Active Substance: CARBIDOPA\LEVODOPA
     Indication: Parkinson^s disease
     Dosage: MD: 10 ML?CD: 2.4 ML/HR X 16 HRS?ED: 2 ML/UNIT X 2
     Route: 050
     Dates: start: 20190517, end: 20210324
  2. CARBIDOPA\LEVODOPA [Suspect]
     Active Substance: CARBIDOPA\LEVODOPA
     Dosage: MD: 10 ML?CD: 1.6 ML/HR X 16 HRS?ED: 2 ML/UNIT X 2
     Route: 050
     Dates: start: 20210324
  3. CARBIDOPA HYDRATE;LEVODOPA [Concomitant]
     Indication: Parkinson^s disease
     Route: 048
  4. REQUIP [Concomitant]
     Active Substance: ROPINIROLE HYDROCHLORIDE
     Indication: Parkinson^s disease
     Route: 048
  5. ALENDRONATE SODIUM [Concomitant]
     Active Substance: ALENDRONATE SODIUM
     Indication: Product used for unknown indication
     Route: 048
  6. ESZOPICLONE [Concomitant]
     Active Substance: ESZOPICLONE
     Indication: Product used for unknown indication
     Route: 048
  7. SOLIFENACIN SUCCINATE [Concomitant]
     Active Substance: SOLIFENACIN SUCCINATE
     Indication: Product used for unknown indication
     Route: 048
  8. CLOSTRIDIUM BUTYRICUM SPORES STRAIN M-55 [Concomitant]
     Active Substance: CLOSTRIDIUM BUTYRICUM SPORES STRAIN M-55
     Indication: Product used for unknown indication
     Route: 048
  9. LANSOPRAZOLE [Concomitant]
     Active Substance: LANSOPRAZOLE
     Indication: Product used for unknown indication
     Route: 048
  10. LUBIPROSTONE [Concomitant]
     Active Substance: LUBIPROSTONE
     Indication: Product used for unknown indication
     Route: 048
  11. SHAKUYAKUKANZOTO [Concomitant]
     Active Substance: HERBALS
     Indication: Product used for unknown indication
     Route: 048

REACTIONS (23)
  - Fractured sacrum [Recovering/Resolving]
  - Stoma site infection [Recovered/Resolved]
  - Mobility decreased [Unknown]
  - Fatigue [Recovering/Resolving]
  - On and off phenomenon [Recovering/Resolving]
  - Stoma site pain [Recovered/Resolved]
  - Stoma site haemorrhage [Recovered/Resolved]
  - Catheter site discolouration [Unknown]
  - On and off phenomenon [Unknown]
  - Stoma site erythema [Unknown]
  - Nausea [Unknown]
  - Stoma site pain [Recovered/Resolved]
  - Device colour issue [Unknown]
  - Device issue [Unknown]
  - Stoma site pain [Recovered/Resolved]
  - Dyskinesia [Unknown]
  - Fall [Unknown]
  - Incorrect dose administered [Unknown]
  - Wrong technique in device usage process [Unknown]
  - Diarrhoea [Unknown]
  - Malaise [Unknown]
  - Unintentional medical device removal [Unknown]
  - On and off phenomenon [Unknown]

NARRATIVE: CASE EVENT DATE: 20190101
